FAERS Safety Report 18604537 (Version 1)
Quarter: 2020Q4

REPORT INFORMATION
  Report Type: Spontaneous
  Country: US (occurrence: US)
  Receive Date: 20201210
  Receipt Date: 20201210
  Transmission Date: 20210114
  Serious: Yes (Death)
  Sender: FDA-Public Use
  Company Number: None

PATIENT
  Age: 76 Year
  Sex: Female

DRUGS (46)
  1. BAMLANIVIMAB. [Suspect]
     Active Substance: BAMLANIVIMAB
     Indication: COVID-19
  2. GLUCOPHAGE [Concomitant]
     Active Substance: METFORMIN HYDROCHLORIDE
  3. INSULIN GLARGINE [Concomitant]
     Active Substance: INSULIN GLARGINE
  4. MILK OF MAGNESIA [Concomitant]
     Active Substance: MAGNESIUM HYDROXIDE
  5. NOVOLOG [Concomitant]
     Active Substance: INSULIN ASPART
  6. SPIRONOLACTONE. [Concomitant]
     Active Substance: SPIRONOLACTONE
  7. BREO ELLIPTA [Concomitant]
     Active Substance: FLUTICASONE FUROATE\VILANTEROL TRIFENATATE
  8. DIGOXIN. [Concomitant]
     Active Substance: DIGOXIN
  9. HYDROXYZINE [Concomitant]
     Active Substance: HYDROXYZINE HYDROCHLORIDE
  10. LINAGLIPTIN [Concomitant]
     Active Substance: LINAGLIPTIN
  11. DICYCLOMINE [Concomitant]
     Active Substance: DICYCLOMINE HYDROCHLORIDE
  12. DIPHENOXYLATE-ATROPINE [Concomitant]
     Active Substance: ATROPINE\DIPHENOXYLATE
  13. ALLEGRA [Concomitant]
     Active Substance: FEXOFENADINE HYDROCHLORIDE
  14. B-50 COMPLEX [Concomitant]
  15. CEROVITE TAB SENIOR [Concomitant]
  16. ESCITALOPRAM [Concomitant]
     Active Substance: ESCITALOPRAM OXALATE
  17. ASPIRIN 81 MG [Concomitant]
     Active Substance: ASPIRIN
  18. BUPROPION. [Concomitant]
     Active Substance: BUPROPION
  19. HEALTHY EYES LUTEIN [Concomitant]
  20. MERCAPTOPUR [Concomitant]
  21. MESALAMINE. [Concomitant]
     Active Substance: MESALAMINE
  22. MIRTAZAPINE. [Concomitant]
     Active Substance: MIRTAZAPINE
  23. ONDANSETRON [Concomitant]
     Active Substance: ONDANSETRON
  24. PANTOPRAZOLE [Concomitant]
     Active Substance: PANTOPRAZOLE
  25. ARIPIPRAZOLE. [Concomitant]
     Active Substance: ARIPIPRAZOLE
  26. ELIQUIS [Concomitant]
     Active Substance: APIXABAN
  27. FAMOTIDINE. [Concomitant]
     Active Substance: FAMOTIDINE
  28. SENNA [Concomitant]
     Active Substance: SENNA LEAF\SENNOSIDES\SENNOSIDES A AND B
  29. TESSALON [Concomitant]
     Active Substance: BENZONATATE
  30. VENTOLIN [Concomitant]
     Active Substance: ALBUTEROL SULFATE
  31. ATORVASTATIN [Concomitant]
     Active Substance: ATORVASTATIN
  32. CARVEDILOL. [Concomitant]
     Active Substance: CARVEDILOL
  33. FOLIC ACID. [Concomitant]
     Active Substance: FOLIC ACID
  34. FUROSEMIDE. [Concomitant]
     Active Substance: FUROSEMIDE
  35. GLUCOSAMINE-CHRONDROITIN [Concomitant]
  36. MELATONIN [Concomitant]
     Active Substance: MELATONIN
  37. METAMUCIL [Concomitant]
     Active Substance: PLANTAGO SEED
  38. OXYCODONE [Concomitant]
     Active Substance: OXYCODONE
  39. ZINC SULFATE. [Concomitant]
     Active Substance: ZINC SULFATE
  40. BUSPIRONE [Concomitant]
     Active Substance: BUSPIRONE HYDROCHLORIDE
  41. VITAMIN C [Concomitant]
     Active Substance: ASCORBIC ACID
  42. SALINE NASAL SPRAY [Concomitant]
     Active Substance: SODIUM CHLORIDE
  43. FLUTICASONE NASAL SPRAY [Concomitant]
     Active Substance: FLUTICASONE
  44. LACTULOSE. [Concomitant]
     Active Substance: LACTULOSE
  45. MAGNESIUM OXIDE. [Concomitant]
     Active Substance: MAGNESIUM OXIDE
  46. ACETAMINOPHEN. [Concomitant]
     Active Substance: ACETAMINOPHEN

REACTIONS (3)
  - Cardio-respiratory arrest [None]
  - Seizure [None]
  - Confusional state [None]
